FAERS Safety Report 18511272 (Version 1)
Quarter: 2020Q4

REPORT INFORMATION
  Report Type: Spontaneous
  Country: GB (occurrence: GB)
  Receive Date: 20201117
  Receipt Date: 20201117
  Transmission Date: 20210114
  Serious: Yes (Life-Threatening)
  Sender: FDA-Public Use
  Company Number: GB-TEVA-2020-GB-1848248

PATIENT
  Age: 76 Year
  Sex: Female

DRUGS (19)
  1. NICORANDIL [Concomitant]
     Active Substance: NICORANDIL
  2. ISOSORBIDE MONONITRATE. [Concomitant]
     Active Substance: ISOSORBIDE MONONITRATE
  3. DIPROBASE [Concomitant]
     Active Substance: CHLOROCRESOL
  4. FOLIC ACID. [Concomitant]
     Active Substance: FOLIC ACID
  5. CANDESARTAN. [Concomitant]
     Active Substance: CANDESARTAN
  6. COLECALCIFEROL [Concomitant]
     Active Substance: CHOLECALCIFEROL
  7. DESMOPRESSIN [Concomitant]
     Active Substance: DESMOPRESSIN
  8. SALBUTAMOL [Concomitant]
     Active Substance: ALBUTEROL
  9. LANSOPRAZOLE. [Concomitant]
     Active Substance: LANSOPRAZOLE
  10. MIRTAZAPINE. [Concomitant]
     Active Substance: MIRTAZAPINE
  11. AMLODIPINE [Concomitant]
     Active Substance: AMLODIPINE BESYLATE
  12. RAMIPRIL. [Suspect]
     Active Substance: RAMIPRIL
     Route: 048
  13. ATORVASTATIN [Concomitant]
     Active Substance: ATORVASTATIN
  14. DOCUSATE [Concomitant]
     Active Substance: DOCUSATE
  15. CLOPIDOGREL [Concomitant]
     Active Substance: CLOPIDOGREL BISULFATE
  16. BISOPROLOL [Concomitant]
     Active Substance: BISOPROLOL
  17. HUMALOG MIX75/25 [Concomitant]
     Active Substance: INSULIN LISPRO
  18. GLUCOSE [Concomitant]
     Active Substance: DEXTROSE
  19. SERTRALINE [Concomitant]
     Active Substance: SERTRALINE HYDROCHLORIDE

REACTIONS (1)
  - Anaphylactic reaction [Unknown]

NARRATIVE: CASE EVENT DATE: 20190928
